FAERS Safety Report 5421490-1 (Version None)
Quarter: 2007Q3

REPORT INFORMATION
  Report Type: 
  Country: None (occurrence: None)
  Receive Date: 20070725
  Receipt Date: 20061025
  Transmission Date: 20080115
  Serious: Yes (Other)
  Sender: FDA-Public Use
  Company Number: USA-2006-0025488

PATIENT
  Sex: Male

DRUGS (4)
  1. MORPHINE SULFATE [Suspect]
     Indication: BREAKTHROUGH PAIN
  2. FENTANYL [Suspect]
     Indication: BREAKTHROUGH PAIN
  3. DILAUDID [Suspect]
     Indication: BREAKTHROUGH PAIN
  4. DURAGESIC-100 [Suspect]
     Indication: DRUG USE FOR UNKNOWN INDICATION

REACTIONS (2)
  - MUSCLE SPASMS [None]
  - OEDEMA PERIPHERAL [None]
